FAERS Safety Report 12874444 (Version 1)
Quarter: 2016Q4

REPORT INFORMATION
  Report Type: Spontaneous
  Country: NZ (occurrence: NZ)
  Receive Date: 20161021
  Receipt Date: 20161021
  Transmission Date: 20170207
  Serious: Yes (Death, Life-Threatening, Hospitalization, Other)
  Sender: FDA-Public Use
  Company Number: NZ-ASTRAZENECA-2016SF08695

PATIENT
  Age: 71 Year
  Sex: Female

DRUGS (8)
  1. FLUOXETINE [Concomitant]
     Active Substance: FLUOXETINE HYDROCHLORIDE
  2. ATROVASTATIN [Concomitant]
     Active Substance: ATORVASTATIN CALCIUM
  3. TICAGRELOR [Suspect]
     Active Substance: TICAGRELOR
     Route: 048
  4. METOPROLOL CR [Concomitant]
  5. SIMVASTATIN. [Concomitant]
     Active Substance: SIMVASTATIN
  6. LMWH [Concomitant]
     Active Substance: UNSPECIFIED INGREDIENT
  7. QUINAPRIL. [Concomitant]
     Active Substance: QUINAPRIL
  8. ASPIRIN. [Concomitant]
     Active Substance: ASPIRIN

REACTIONS (3)
  - Interstitial lung disease [Fatal]
  - Respiratory failure [Fatal]
  - Pulmonary haemorrhage [Fatal]
